FAERS Safety Report 19486413 (Version 1)
Quarter: 2021Q3

REPORT INFORMATION
  Report Type: Other
  Country: FR (occurrence: FR)
  Receive Date: 20210702
  Receipt Date: 20210702
  Transmission Date: 20211014
  Serious: Yes (Other)
  Sender: FDA-Public Use
  Company Number: FR-ROCHE-2856652

PATIENT
  Age: 41 Year
  Sex: Female

DRUGS (5)
  1. RIBAVIRIN. [Suspect]
     Active Substance: RIBAVIRIN
     Indication: HEPATITIS C
     Route: 065
     Dates: start: 200208
  2. PEGYLATED INTERFERON ALFA?2A [Concomitant]
     Active Substance: PEGINTERFERON ALFA-2A
     Indication: HEPATITIS C
     Dates: start: 200208
  3. TENOFOVIR [Suspect]
     Active Substance: TENOFOVIR
     Indication: HIV INFECTION
     Route: 065
     Dates: start: 200111
  4. ABACAVIR. [Suspect]
     Active Substance: ABACAVIR
     Indication: HIV INFECTION
     Route: 065
     Dates: start: 200111
  5. NEVIRAPINE. [Suspect]
     Active Substance: NEVIRAPINE
     Indication: HIV INFECTION
     Route: 065
     Dates: start: 200111

REACTIONS (10)
  - Myalgia [Recovering/Resolving]
  - Paraesthesia [Recovering/Resolving]
  - Anaemia [Recovering/Resolving]
  - Proteinuria [Recovering/Resolving]
  - Glycosuria [Recovering/Resolving]
  - Hypophosphataemia [Recovering/Resolving]
  - Renal tubular injury [Recovering/Resolving]
  - Renal tubular dysfunction [Recovering/Resolving]
  - Haemoglobinaemia [Recovering/Resolving]
  - Nephropathy toxic [Recovering/Resolving]

NARRATIVE: CASE EVENT DATE: 2003
